FAERS Safety Report 8810081 (Version 2)
Quarter: 2012Q4

REPORT INFORMATION
  Report Type: 
  Country: IE (occurrence: IE)
  Receive Date: 20120926
  Receipt Date: 20121019
  Transmission Date: 20130627
  Serious: Yes (Other)
  Sender: FDA-Public Use
  Company Number: IE-PFIZER INC-2012233046

PATIENT
  Age: 72 Year
  Sex: Male
  Weight: 108.1 kg

DRUGS (6)
  1. GENOTROPIN [Suspect]
     Dosage: 0.3 mg, UNK
     Route: 058
     Dates: start: 201204
  2. COZAAR [Concomitant]
     Indication: HYPERTENSION
     Dosage: 100, UNK
     Route: 048
  3. ZANIDIP [Concomitant]
     Indication: HYPERTENSION
     Dosage: 20, UNK
     Route: 048
  4. CARDURA [Concomitant]
     Indication: HYPERTENSION
     Dosage: UNK
     Route: 048
  5. TESTOGEL [Concomitant]
     Indication: HORMONE REPLACEMENT THERAPY
     Dosage: UNK
     Route: 048
  6. LEXAPRO [Concomitant]
     Indication: RELAXATION THERAPY
     Dosage: 20 mg, UNK
     Route: 048

REACTIONS (5)
  - Paralysis [Recovered/Resolved]
  - Oedema peripheral [Recovered/Resolved]
  - Fatigue [Recovered/Resolved]
  - Pain in extremity [Recovered/Resolved]
  - Hypoaesthesia [Recovered/Resolved]
